FAERS Safety Report 13209362 (Version 1)
Quarter: 2017Q1

REPORT INFORMATION
  Report Type: Spontaneous
  Country: AU (occurrence: AU)
  Receive Date: 20170209
  Receipt Date: 20170209
  Transmission Date: 20170428
  Serious: Yes (Hospitalization)
  Sender: FDA-Public Use
  Company Number: AU-ELI_LILLY_AND_COMPANY-AU201701010838

PATIENT
  Sex: Male

DRUGS (2)
  1. FORTEO [Suspect]
     Active Substance: TERIPARATIDE
     Indication: OSTEOPOROSIS
     Dosage: 20 UG, QD
     Route: 058
     Dates: start: 20160426, end: 201612
  2. FORTEO [Suspect]
     Active Substance: TERIPARATIDE
     Dosage: 20 UG, QD
     Route: 058
     Dates: start: 201609, end: 201612

REACTIONS (5)
  - Ocular hyperaemia [Unknown]
  - Gastrointestinal disorder [Not Recovered/Not Resolved]
  - Feeding disorder [Unknown]
  - Oropharyngeal pain [Unknown]
  - Weight decreased [Recovering/Resolving]
